FAERS Safety Report 13686840 (Version 1)
Quarter: 2017Q2

REPORT INFORMATION
  Report Type: Spontaneous
  Country: US (occurrence: US)
  Receive Date: 20170623
  Receipt Date: 20170623
  Transmission Date: 20170830
  Serious: Yes (Disabling, Other)
  Sender: FDA-Public Use
  Company Number: US-BAUSCH-BL-2017-019723

PATIENT
  Sex: Female

DRUGS (1)
  1. XENAZINE [Suspect]
     Active Substance: TETRABENAZINE
     Indication: DYSKINESIA
     Route: 048

REACTIONS (11)
  - Diarrhoea [Recovered/Resolved]
  - Somnolence [Recovered/Resolved]
  - Impaired driving ability [Recovered/Resolved]
  - Dyskinesia [Recovered/Resolved]
  - Drug intolerance [Recovered/Resolved]
  - Treatment noncompliance [Unknown]
  - Incoherent [Recovered/Resolved]
  - Communication disorder [Recovered/Resolved]
  - Off label use [Recovered/Resolved]
  - Feeling abnormal [Recovered/Resolved]
  - Memory impairment [Recovered/Resolved]
